FAERS Safety Report 6176773-7 (Version None)
Quarter: 2009Q2

REPORT INFORMATION
  Report Type: 
  Country: None (occurrence: None)
  Receive Date: 20090501
  Receipt Date: 20090420
  Transmission Date: 20091009
  Serious: Yes (Other)
  Sender: FDA-Public Use
  Company Number: GB-ELI_LILLY_AND_COMPANY-GB200904003991

PATIENT
  Age: 57 Year
  Sex: Female
  Weight: 88.9 kg

DRUGS (4)
  1. ALIMTA [Suspect]
     Indication: NON-SMALL CELL LUNG CANCER STAGE III
     Dosage: 975 MG, UNKNOWN
     Route: 042
     Dates: start: 20090310
  2. DEXAMETHASONE TAB [Concomitant]
     Dosage: UNK, UNKNOWN
     Route: 065
  3. METOCLOPRAMIDE [Concomitant]
     Dosage: UNK, UNKNOWN
     Route: 065
  4. ONDANSETRON [Concomitant]
     Dosage: UNK, UNKNOWN
     Route: 065

REACTIONS (2)
  - ALANINE AMINOTRANSFERASE INCREASED [None]
  - HEPATIC STEATOSIS [None]
